FAERS Safety Report 8236788-1 (Version None)
Quarter: 2012Q1

REPORT INFORMATION
  Report Type: 
  Country: None (occurrence: None)
  Receive Date: 20120327
  Receipt Date: 20120321
  Transmission Date: 20120608
  Serious: Yes (Hospitalization)
  Sender: FDA-Public Use
  Company Number: FR-SANOFI-AVENTIS-2012SA019491

PATIENT
  Age: 61 Year
  Sex: Female

DRUGS (9)
  1. PREVISCAN [Suspect]
     Indication: THROMBOSIS PROPHYLAXIS
     Route: 048
     Dates: end: 20101201
  2. PANTOPRAZOLE [Concomitant]
     Route: 048
  3. LASIX [Concomitant]
     Route: 048
  4. ALDACTONE [Concomitant]
     Route: 048
  5. PROPRANOLOL [Concomitant]
     Route: 048
  6. PREVISCAN [Suspect]
     Route: 048
     Dates: start: 20101206
  7. LOVENOX [Suspect]
     Indication: THROMBOSIS PROPHYLAXIS
     Route: 058
     Dates: end: 20101201
  8. CALCIUM CARBONATE/COLECALCIFEROL [Concomitant]
     Indication: CALCIUM DEFICIENCY
     Route: 048
  9. HYDREA [Concomitant]
     Route: 048

REACTIONS (3)
  - ABDOMINAL PAIN UPPER [None]
  - NAUSEA [None]
  - HAEMATEMESIS [None]
